FAERS Safety Report 10098176 (Version 2)
Quarter: 2014Q2

REPORT INFORMATION
  Report Type: Spontaneous
  Country: US (occurrence: US)
  Receive Date: 20140423
  Receipt Date: 20140423
  Transmission Date: 20141212
  Serious: Yes (Hospitalization)
  Sender: FDA-Public Use
  Company Number: US-ROCHE-1387609

PATIENT
  Sex: Male

DRUGS (2)
  1. XELODA [Suspect]
     Indication: COLORECTAL CANCER
     Dosage: 3 CYCLES
     Route: 065
  2. OXALIPLATIN [Concomitant]
     Indication: COLORECTAL CANCER
     Dosage: 3 CYCLES
     Route: 065

REACTIONS (3)
  - Renal failure [Unknown]
  - Renal failure acute [Not Recovered/Not Resolved]
  - Blood creatinine abnormal [Not Recovered/Not Resolved]
